FAERS Safety Report 8494471-1 (Version None)
Quarter: 2012Q3

REPORT INFORMATION
  Report Type: 
  Country: None (occurrence: None)
  Receive Date: 20120709
  Receipt Date: 20120627
  Transmission Date: 20120928
  Serious: Yes (Hospitalization)
  Sender: FDA-Public Use
  Company Number: US-JNJFOC-20120614647

PATIENT
  Sex: Female
  Weight: 68.04 kg

DRUGS (4)
  1. FENTANYL-100 [Suspect]
     Route: 062
     Dates: start: 20120601
  2. FENTANYL-100 [Suspect]
     Route: 062
     Dates: start: 20110101, end: 20120101
  3. FENTANYL-100 [Suspect]
     Indication: PAIN
     Dosage: NDC#0781724055
     Route: 062
     Dates: start: 20110101
  4. AN UNKNOWN MEDICATION [Suspect]
     Indication: PRODUCT USED FOR UNKNOWN INDICATION
     Route: 065

REACTIONS (7)
  - DIZZINESS [None]
  - CARDIAC FAILURE CONGESTIVE [None]
  - MITRAL VALVE REPAIR [None]
  - NAUSEA [None]
  - EAR DISORDER [None]
  - PRODUCT QUALITY ISSUE [None]
  - ATRIAL FIBRILLATION [None]
